FAERS Safety Report 8798040 (Version 1)
Quarter: 2012Q4

REPORT INFORMATION
  Report Type: 
  Country: US (occurrence: US)
  Receive Date: 20120920
  Receipt Date: 20120920
  Transmission Date: 20130627
  Serious: Yes (Other)
  Sender: FDA-Public Use
  Company Number: US-AMGEN-USASP2012058805

PATIENT
  Age: 59 Year
  Sex: Female

DRUGS (1)
  1. ENBREL [Suspect]
     Indication: PSORIATIC ARTHROPATHY
     Dosage: 50 mg, qwk
     Route: 058
     Dates: start: 20000101

REACTIONS (8)
  - Transient ischaemic attack [Recovered/Resolved]
  - Hypothalamo-pituitary disorder [Not Recovered/Not Resolved]
  - Hyperkalaemia [Recovered/Resolved]
  - Nerve compression [Recovered/Resolved]
  - Neuropathy peripheral [Not Recovered/Not Resolved]
  - Neck pain [Not Recovered/Not Resolved]
  - Anaemia [Recovered/Resolved]
  - Bronchitis [Recovered/Resolved]
